FAERS Safety Report 18584554 (Version 5)
Quarter: 2021Q1

REPORT INFORMATION
  Report Type: Spontaneous
  Country: IL (occurrence: IL)
  Receive Date: 20201207
  Receipt Date: 20210105
  Transmission Date: 20210419
  Serious: Yes (Hospitalization)
  Sender: FDA-Public Use
  Company Number: IL-REGENERON PHARMACEUTICALS, INC.-2020-91685

PATIENT

DRUGS (1)
  1. EYLEA [Suspect]
     Active Substance: AFLIBERCEPT
     Indication: RETINAL VEIN OCCLUSION
     Dosage: RECEIVED 15 EYLEA INJECTIONS IN TOTAL, LAST INJECTION OF EYLEA ON 15?SEP?2020 IN THE MORNING HOURS
     Dates: start: 20181029

REACTIONS (6)
  - Blindness [Recovering/Resolving]
  - Visual impairment [Unknown]
  - Vitreous floaters [Unknown]
  - Endophthalmitis [Recovering/Resolving]
  - Wrong technique in product usage process [Unknown]
  - Vision blurred [Unknown]

NARRATIVE: CASE EVENT DATE: 202009
